FAERS Safety Report 9549755 (Version 1)
Quarter: 2013Q3

REPORT INFORMATION
  Report Type: Spontaneous
  Country: US (occurrence: US)
  Receive Date: 20130924
  Receipt Date: 20130924
  Transmission Date: 20140515
  Serious: Yes (Hospitalization, Other)
  Sender: FDA-Public Use
  Company Number: US-BRISTOL-MYERS SQUIBB COMPANY-19430198

PATIENT
  Sex: Male
  Weight: 87.98 kg

DRUGS (1)
  1. BYETTA [Suspect]
     Dates: start: 200801, end: 200807

REACTIONS (3)
  - Pancreatitis [Not Recovered/Not Resolved]
  - Organ failure [Not Recovered/Not Resolved]
  - Deep vein thrombosis [Not Recovered/Not Resolved]
